FAERS Safety Report 4539051-5 (Version None)
Quarter: 2004Q4

REPORT INFORMATION
  Report Type: 
  Country: None (occurrence: None)
  Receive Date: 20041222
  Receipt Date: 20041207
  Transmission Date: 20050328
  Serious: Yes (Other)
  Sender: FDA-Public Use
  Company Number: US014440

PATIENT
  Age: 14 Month
  Sex: Female
  Weight: 11.3399 kg

DRUGS (1)
  1. ACTIQ [Suspect]
     Dosage: 400 UG ONCE BUCCAL
     Route: 002
     Dates: start: 20041207, end: 20041207

REACTIONS (2)
  - ACCIDENTAL EXPOSURE [None]
  - DEPRESSED LEVEL OF CONSCIOUSNESS [None]
